FAERS Safety Report 10377666 (Version 1)
Quarter: 2014Q1

REPORT INFORMATION
  Report Type: Spontaneous
  Country: US (occurrence: None)
  Receive Date: 20140306
  Receipt Date: 20140306
  Transmission Date: 20141002
  Serious: Yes (Life-Threatening, Hospitalization)
  Sender: FDA-Public Use
  Company Number: 163-21880-13031282

PATIENT
  Age: 64 Year
  Sex: Male
  Weight: 57.15 kg

DRUGS (1)
  1. REVLIMID (LENALIDOMIDE) (15 MILLIGRAM, CAPSULES) [Suspect]
     Indication: PLASMA CELL MYELOMA
     Dosage: 21 IN 21 D,PO
     Route: 048
     Dates: start: 20111006

REACTIONS (1)
  - Plasma cell myeloma recurrent [None]
